FAERS Safety Report 8951449 (Version 5)
Quarter: 2013Q4

REPORT INFORMATION
  Report Type: Spontaneous
  Country: GB (occurrence: None)
  Receive Date: 20121129
  Receipt Date: 20131028
  Transmission Date: 20140711
  Serious: Yes (Other)
  Sender: FDA-Public Use
  Company Number: AUR-APL-2012-05034

PATIENT
  Age: 79 Year
  Sex: Male

DRUGS (12)
  1. METFORMIN (METFORMIN) [Suspect]
     Indication: TYPE 2 DIABETES MELLITUS
     Dosage: 1 DF, 2X/DAY EVERY MORNING AND EVERY NIGHT DOSE: 6 IN TOTAL
  2. LANTUS [Suspect]
     Indication: TYPE 2 DIABETES MELLITUS
  3. AMLODIPINE (AMLODIPINE) [Concomitant]
  4. ASPIRIN (ACETYLSALICYLIC ACID) [Concomitant]
  5. BISOPROLOL (BISOPROLOL) [Concomitant]
  6. BRILIQUE (TICARGRELOR) [Concomitant]
  7. GLICLAZIDE (GLICLAZIDE) [Concomitant]
  8. OMEPRAZOLE (OMEPRAZOLE) [Concomitant]
  9. PARACETAMOL (PARACETAMOL) [Concomitant]
  10. RAMIPRIL (RAMIPRIL) [Concomitant]
  11. TRITACE (RAMIPRIL) [Concomitant]
  12. ZYDOL (NIMESULIDE) [Concomitant]

REACTIONS (2)
  - Dyspnoea [None]
  - Dyspnoea at rest [None]
